FAERS Safety Report 10915353 (Version 2)
Quarter: 2015Q2

REPORT INFORMATION
  Report Type: Spontaneous
  Country: US (occurrence: US)
  Receive Date: 20150316
  Receipt Date: 20150603
  Transmission Date: 20150821
  Serious: Yes (Other)
  Sender: FDA-Public Use
  Company Number: US-THROMBOGENICS NV-SPO-2015-1788

PATIENT
  Age: 54 Year
  Sex: Female

DRUGS (6)
  1. JETREA [Suspect]
     Active Substance: OCRIPLASMIN
     Indication: VITREOUS ADHESIONS
     Dosage: 0.125 MG, ONE TIME DOSE
     Route: 031
     Dates: start: 20130702, end: 20130702
  2. CALTRATE [Concomitant]
     Active Substance: CALCIUM CARBONATE
     Indication: VITAMIN SUPPLEMENTATION
     Dosage: 600-400 MG BID
  3. SERTRALINE [Concomitant]
     Active Substance: SERTRALINE HYDROCHLORIDE
     Indication: PRODUCT USED FOR UNKNOWN INDICATION
     Dosage: 500 MG, QD
  4. ARTIFICIAL TEARS [Concomitant]
     Active Substance: GLYCERIN\HYPROMELLOSES\POLYETHYLENE GLYCOL 400
     Indication: EYE DISORDER
     Dosage: 1 DF, PRN
  5. FLAVINE ADENINE DINUCLEOTIDE [Concomitant]
     Indication: HEPATITIS C
     Dosage: UNK
  6. PEGASYS [Concomitant]
     Active Substance: PEGINTERFERON ALFA-2A
     Indication: HEPATITIS C
     Dosage: UNK

REACTIONS (7)
  - Retinoschisis [Recovering/Resolving]
  - Vitreous floaters [Unknown]
  - Visual acuity reduced transiently [Recovered/Resolved]
  - Eye inflammation [Unknown]
  - Retinal injury [Unknown]
  - Disease progression [Unknown]
  - Subretinal fluid [Unknown]

NARRATIVE: CASE EVENT DATE: 20130703
